FAERS Safety Report 20227866 (Version 1)
Quarter: 2021Q4

REPORT INFORMATION
  Report Type: Spontaneous
  Country: US (occurrence: None)
  Receive Date: 20211224
  Receipt Date: 20211224
  Transmission Date: 20220303
  Serious: Yes (Other)
  Sender: FDA-Public Use
  Company Number: US-Fresenius Kabi-FK202114480

PATIENT
  Age: 2 Year

DRUGS (1)
  1. FLUMAZENIL [Suspect]
     Active Substance: FLUMAZENIL
     Indication: Toxicity to various agents
     Route: 065

REACTIONS (2)
  - Seizure [Unknown]
  - Condition aggravated [Unknown]
